FAERS Safety Report 4929727-X (Version None)
Quarter: 2006Q1

REPORT INFORMATION
  Report Type: 
  Country: None (occurrence: None)
  Receive Date: 20060301
  Receipt Date: 20050908
  Transmission Date: 20060701
  Serious: Yes (Hospitalization, Other)
  Sender: FDA-Public Use
  Company Number: US-MERCK-0509USA00986

PATIENT
  Age: 77 Year
  Sex: Male
  Weight: 101 kg

DRUGS (16)
  1. COMBIVENT [Concomitant]
     Route: 065
  2. TIMOPTIC [Concomitant]
     Route: 065
  3. XALATAN [Concomitant]
     Route: 065
  4. TIAZAC [Concomitant]
     Route: 065
  5. LOTENSIN [Concomitant]
     Route: 065
  6. TOPROL-XL [Concomitant]
     Route: 065
  7. VIOXX [Suspect]
     Indication: OSTEOARTHRITIS
     Route: 048
     Dates: start: 20001101, end: 20040901
  8. LIPITOR [Concomitant]
     Route: 065
  9. LESCOL [Concomitant]
     Route: 065
  10. FLOVENT [Concomitant]
     Route: 065
  11. PROTONIX [Concomitant]
     Route: 065
  12. PRILOSEC [Concomitant]
     Route: 065
  13. PLAVIX [Concomitant]
     Route: 065
  14. ASPIRIN [Concomitant]
     Route: 065
  15. CYANOCOBALAMIN [Concomitant]
     Route: 065
  16. [THERAPY UNSPECIFIED] [Concomitant]
     Route: 065

REACTIONS (15)
  - ARTERIOSCLEROSIS CORONARY ARTERY [None]
  - ARTHROPATHY [None]
  - BASAL CELL CARCINOMA [None]
  - CARDIAC FAILURE CONGESTIVE [None]
  - CHRONIC OBSTRUCTIVE PULMONARY DISEASE [None]
  - DRUG HYPERSENSITIVITY [None]
  - GASTROOESOPHAGEAL REFLUX DISEASE [None]
  - GLAUCOMA [None]
  - HYPERTENSION [None]
  - MYOCARDIAL INFARCTION [None]
  - PHARYNGOLARYNGEAL PAIN [None]
  - PNEUMONIA [None]
  - PROSTATIC DISORDER [None]
  - SQUAMOUS CELL CARCINOMA OF SKIN [None]
  - TINEA CRURIS [None]
